FAERS Safety Report 5563278-7 (Version None)
Quarter: 2007Q4

REPORT INFORMATION
  Report Type: 
  Country: None (occurrence: None)
  Receive Date: 20071217
  Receipt Date: 20071212
  Transmission Date: 20080405
  Serious: Yes (Other)
  Sender: FDA-Public Use
  Company Number: JP-MERCK-0710USA05997

PATIENT
  Age: 36 Year
  Sex: Female
  Weight: 54 kg

DRUGS (10)
  1. ALDOMET [Suspect]
     Indication: PREGNANCY INDUCED HYPERTENSION
     Route: 048
  2. [THERAPY UNSPECIFIED] [Concomitant]
     Route: 065
  3. RITODRINE HYDROCHLORIDE [Concomitant]
     Route: 042
  4. NICARDIPINE HYDROCHLORIDE [Concomitant]
     Indication: PREGNANCY INDUCED HYPERTENSION
     Route: 042
  5. GABEXATE MESYLATE [Concomitant]
     Route: 051
  6. MAGNESIUM SULFATE [Concomitant]
     Route: 042
  7. ALBUMIN HUMAN [Concomitant]
     Route: 042
  8. FUROSEMIDE [Concomitant]
     Route: 065
  9. DOPAMINE HYDROCHLORIDE [Concomitant]
     Route: 051
  10. ANTITHROMBIN III [Concomitant]
     Route: 042

REACTIONS (3)
  - DRUG EXPOSURE DURING PREGNANCY [None]
  - HELLP SYNDROME [None]
  - RENAL FAILURE ACUTE [None]
